FAERS Safety Report 6738296-3 (Version None)
Quarter: 2010Q2

REPORT INFORMATION
  Report Type: 
  Country: None (occurrence: None)
  Receive Date: 20100524
  Receipt Date: 20100517
  Transmission Date: 20101027
  Serious: Yes (Other)
  Sender: FDA-Public Use
  Company Number: B0656742A

PATIENT
  Age: 58 Year
  Sex: Female

DRUGS (6)
  1. AUGMENTIN '125' [Suspect]
     Indication: URINARY TRACT INFECTION
     Dosage: 2G PER DAY
     Route: 042
     Dates: start: 20091021, end: 20091023
  2. CEFUROXIME [Suspect]
     Indication: URINARY TRACT INFECTION
     Dates: start: 20091017, end: 20091020
  3. ERTAPENEM [Suspect]
     Indication: URINARY TRACT INFECTION
     Route: 042
     Dates: start: 20091020, end: 20091020
  4. PARACETAMOL [Suspect]
     Indication: PYREXIA
     Route: 065
  5. LORAZEPAM [Concomitant]
     Indication: AGITATION
     Dosage: 3MG PER DAY
     Route: 048
  6. RISPERDAL [Concomitant]
     Indication: AGITATION
     Dosage: 3MG PER DAY
     Route: 065

REACTIONS (1)
  - HEPATOTOXICITY [None]
